FAERS Safety Report 24284372 (Version 1)
Quarter: 2024Q3

REPORT INFORMATION
  Report Type: Spontaneous
  Country: PT (occurrence: PT)
  Receive Date: 20240905
  Receipt Date: 20240905
  Transmission Date: 20241017
  Serious: Yes (Other)
  Sender: ROCHE
  Company Number: None

PATIENT
  Age: 38 Year
  Sex: Female

DRUGS (2)
  1. RITUXIMAB [Suspect]
     Active Substance: RITUXIMAB
     Indication: Focal segmental glomerulosclerosis
     Dosage: 1,000 MG ON DAY 1 AND AFTER 14-20 DAYS
     Route: 050
  2. RITUXIMAB [Suspect]
     Active Substance: RITUXIMAB
     Dosage: 10 MG.ML IN ISOTONIC SALINE AT A CONCENTRATION OF 10 MG/ML
     Route: 050

REACTIONS (3)
  - Pyrexia [Unknown]
  - Rash [Unknown]
  - Hepatitis [Unknown]
